FAERS Safety Report 13873748 (Version 1)
Quarter: 2017Q3

REPORT INFORMATION
  Report Type: Spontaneous
  Country: US (occurrence: US)
  Receive Date: 20170816
  Receipt Date: 20170816
  Transmission Date: 20171127
  Serious: Yes (Hospitalization, Other)
  Sender: FDA-Public Use
  Company Number: US-BIOGEN-2017BI00445316

PATIENT
  Sex: Female

DRUGS (1)
  1. TYSABRI [Suspect]
     Active Substance: NATALIZUMAB
     Indication: MULTIPLE SCLEROSIS
     Route: 065
     Dates: start: 20161129

REACTIONS (5)
  - Influenza like illness [Unknown]
  - Gastrointestinal infection [Unknown]
  - Multiple sclerosis [Unknown]
  - Drug tolerance [Unknown]
  - Hypersensitivity [Unknown]
